FAERS Safety Report 7549402-5 (Version None)
Quarter: 2011Q2

REPORT INFORMATION
  Report Type: 
  Country: None (occurrence: None)
  Receive Date: 20110615
  Receipt Date: 20110531
  Transmission Date: 20111010
  Serious: Yes (Hospitalization, Disabling, Other)
  Sender: FDA-Public Use
  Company Number: US-BAYER-2011-021409

PATIENT
  Age: 43 Year
  Sex: Female
  Weight: 78.912 kg

DRUGS (3)
  1. LEVOXYL [Concomitant]
     Dosage: 137 ?G, CONT
     Route: 048
  2. YAZ [Suspect]
     Indication: ORAL CONTRACEPTION
     Dosage: UNK
     Dates: start: 20060901, end: 20090510
  3. ZITHROMAX [Concomitant]

REACTIONS (3)
  - DEEP VEIN THROMBOSIS [None]
  - PULMONARY EMBOLISM [None]
  - PAIN [None]
